FAERS Safety Report 5194137-X (Version None)
Quarter: 2006Q4

REPORT INFORMATION
  Report Type: 
  Country: None (occurrence: None)
  Receive Date: 20061220
  Receipt Date: 20061208
  Transmission Date: 20070319
  Serious: Yes (Hospitalization)
  Sender: FDA-Public Use
  Company Number: HQWYE894112DEC06

PATIENT
  Age: 83 Year
  Sex: Female

DRUGS (2)
  1. ADVIL [Suspect]
     Indication: ORAL SURGERY
     Dosage: 2 LIQUI-GELS ONE TIME, ORAL
     Route: 048
     Dates: start: 20061206, end: 20061206
  2. ADVIL [Suspect]
     Indication: PAIN
     Dosage: 2 LIQUI-GELS ONE TIME, ORAL
     Route: 048
     Dates: start: 20061206, end: 20061206

REACTIONS (6)
  - GINGIVAL BLEEDING [None]
  - HAEMATEMESIS [None]
  - HAEMOPTYSIS [None]
  - MOUTH HAEMORRHAGE [None]
  - PNEUMONITIS [None]
  - RESPIRATORY DISORDER [None]
